FAERS Safety Report 15135003 (Version 2)
Quarter: 2018Q4

REPORT INFORMATION
  Report Type: Spontaneous
  Country: US (occurrence: US)
  Receive Date: 20180712
  Receipt Date: 20181029
  Transmission Date: 20190204
  Serious: No
  Sender: FDA-Public Use
  Company Number: US-PFIZER INC-2018050169

PATIENT
  Age: 57 Year
  Sex: Female
  Weight: 96 kg

DRUGS (1)
  1. IBRANCE [Suspect]
     Active Substance: PALBOCICLIB
     Indication: BREAST CANCER
     Dosage: 125 MG, CYCLIC, (DAILY 21 DAYS, OFF 7 DAYS)
     Route: 048
     Dates: start: 20180201, end: 20180425

REACTIONS (1)
  - Neoplasm progression [Recovering/Resolving]

NARRATIVE: CASE EVENT DATE: 2018
